FAERS Safety Report 25372102 (Version 2)
Quarter: 2025Q3

REPORT INFORMATION
  Report Type: Report from Study
  Country: US (occurrence: US)
  Receive Date: 20250529
  Receipt Date: 20250820
  Transmission Date: 20251021
  Serious: No
  Sender: SUNOVION
  Company Number: US-SUMITOMO PHARMA SWITZERLAND GMBH-2025SPA004647

PATIENT
  Age: 83 Year
  Sex: Male

DRUGS (13)
  1. ORGOVYX [Suspect]
     Active Substance: RELUGOLIX
     Indication: Prostate cancer
     Dosage: 120 MG, QD
     Route: 048
     Dates: start: 20250411
  2. XTANDI [Suspect]
     Active Substance: ENZALUTAMIDE
     Indication: Product used for unknown indication
  3. XTANDI [Suspect]
     Active Substance: ENZALUTAMIDE
  4. DILTIAZEM [Concomitant]
     Active Substance: DILTIAZEM
  5. NIACIN [Concomitant]
     Active Substance: NIACIN
  6. Omega-3 fish oil +vitamin d [Concomitant]
  7. Turmeric complex [Concomitant]
  8. TAMSULOSIN [Concomitant]
     Active Substance: TAMSULOSIN
  9. VALSARTAN [Concomitant]
     Active Substance: VALSARTAN
  10. VITAMIN C [Concomitant]
     Active Substance: ASCORBIC ACID
  11. VITAMIN D3 [Concomitant]
     Active Substance: CHOLECALCIFEROL
  12. CARBIDOPA AND LEVODOPA [Concomitant]
     Active Substance: CARBIDOPA\LEVODOPA
  13. SINEMET [Concomitant]
     Active Substance: CARBIDOPA\LEVODOPA

REACTIONS (5)
  - Nocturia [Recovering/Resolving]
  - Dizziness [Unknown]
  - Fatigue [Unknown]
  - Product dose omission in error [Unknown]
  - Incorrect dose administered [Unknown]
